FAERS Safety Report 8256938-0 (Version None)
Quarter: 2012Q2

REPORT INFORMATION
  Report Type: 
  Country: None (occurrence: None)
  Receive Date: 20120403
  Receipt Date: 20120326
  Transmission Date: 20120825
  Serious: Yes (Other)
  Sender: FDA-Public Use
  Company Number: CA-JNJFOC-20120312646

PATIENT
  Sex: Male

DRUGS (3)
  1. EFFEXOR [Concomitant]
     Route: 065
  2. REMICADE [Suspect]
     Indication: ANKYLOSING SPONDYLITIS
     Dosage: DOSE: 500 (UNITS UNSPECIFIED)
     Route: 042
     Dates: start: 20080131
  3. MODAFINIL [Concomitant]
     Route: 065

REACTIONS (2)
  - ACCIDENT [None]
  - LIMB INJURY [None]
